FAERS Safety Report 9879920 (Version 2)
Quarter: 2014Q1

REPORT INFORMATION
  Report Type: Spontaneous
  Country: IR (occurrence: IR)
  Receive Date: 20140207
  Receipt Date: 20140207
  Transmission Date: 20141002
  Serious: Yes (Other)
  Sender: FDA-Public Use
  Company Number: IR-RANBAXY-2014RR-77421

PATIENT
  Age: 32 Year
  Sex: Male

DRUGS (20)
  1. ZOLPIDEM [Suspect]
     Indication: ANXIETY
     Dosage: 10 MG
     Route: 065
  2. ZOLPIDEM [Suspect]
     Indication: INSOMNIA
     Dosage: 100 TABLETS WITHIN 6 MONTHS
     Route: 065
  3. ZOLPIDEM [Suspect]
     Indication: TIC
     Dosage: 110 - 140 TABLETS OF 10 MG (1100 - 1400MG)
     Route: 065
  4. ZOLPIDEM [Suspect]
     Indication: ANXIETY
     Dosage: 200 X 10MG TABLETS
     Route: 065
  5. ZOLPIDEM [Suspect]
     Indication: INSOMNIA
  6. ZOLPIDEM [Suspect]
     Indication: ANXIETY
     Dosage: 200 TABLETS
     Route: 065
  7. ZOLPIDEM [Suspect]
     Indication: INSOMNIA
  8. ZOLPIDEM [Suspect]
     Indication: TIC
  9. ZOLPIDEM [Suspect]
     Indication: ANXIETY
     Dosage: 10 MG/DAY
     Route: 065
  10. ZOLPIDEM [Suspect]
     Indication: INSOMNIA
  11. ZOLPIDEM [Suspect]
     Indication: TIC
  12. ZOLPIDEM [Suspect]
     Indication: ANXIETY
     Dosage: 1000 MG/DAY
     Route: 065
  13. ZOLPIDEM [Suspect]
     Indication: INSOMNIA
  14. ZOLPIDEM [Suspect]
     Indication: TIC
  15. ZOLPIDEM [Suspect]
     Indication: ANXIETY
     Dosage: 400 MG/DAY
     Route: 065
  16. ZOLPIDEM [Suspect]
     Indication: INSOMNIA
  17. ZOLPIDEM [Suspect]
     Indication: TIC
  18. DIPHENOXYLATE [Suspect]
     Indication: PRODUCT USED FOR UNKNOWN INDICATION
     Dosage: 40 TABLETS
     Route: 065
  19. DIPHENOXYLATE [Suspect]
     Indication: PRODUCT USED FOR UNKNOWN INDICATION
     Dosage: 120 TABLETS WITHIN 6 MONTHS
     Route: 065
  20. ORAP [Concomitant]
     Indication: TIC
     Dosage: UNK
     Route: 065

REACTIONS (7)
  - Drug abuse [Unknown]
  - Euphoric mood [Unknown]
  - Drug tolerance [Unknown]
  - Drug withdrawal syndrome [Unknown]
  - Drug dependence [Unknown]
  - Convulsion [Unknown]
  - Drug withdrawal syndrome [Unknown]
